FAERS Safety Report 6185105-X (Version None)
Quarter: 2009Q2

REPORT INFORMATION
  Report Type: 
  Country: None (occurrence: None)
  Receive Date: 20090511
  Receipt Date: 20090430
  Transmission Date: 20091009
  Serious: Yes (Hospitalization)
  Sender: FDA-Public Use
  Company Number: FR-JNJFOC-20090500596

PATIENT
  Sex: Male

DRUGS (7)
  1. RISPERDAL [Suspect]
     Indication: DEPRESSION
     Route: 048
  2. ZOLPIDEM [Suspect]
     Indication: DRUG USE FOR UNKNOWN INDICATION
     Route: 048
  3. ATHYMIL [Concomitant]
     Route: 065
  4. TAREG [Concomitant]
     Route: 065
  5. ESIDRIX [Concomitant]
     Route: 065
  6. ALPRAZOLAM [Concomitant]
     Route: 065
  7. LYSINE ACETYLSALICYLATE [Concomitant]
     Route: 065

REACTIONS (3)
  - HYPONATRAEMIA [None]
  - MICROCYTIC ANAEMIA [None]
  - MYELODYSPLASTIC SYNDROME [None]
